FAERS Safety Report 5413922-X (Version None)
Quarter: 2007Q3

REPORT INFORMATION
  Report Type: 
  Country: None (occurrence: None)
  Receive Date: 20070810
  Receipt Date: 20070730
  Transmission Date: 20080115
  Serious: Yes (Other)
  Sender: FDA-Public Use
  Company Number: STI-2007-01176

PATIENT
  Age: 46 Year
  Sex: Female

DRUGS (2)
  1. 516A SF194/05 DUAC ONCE DAILY GEL (CLINDAMYCIN + BENZOYL PEROXIDE) (BE [Suspect]
     Indication: ACNE PUSTULAR
     Dosage: TOPICAL
     Route: 061
     Dates: start: 20070401, end: 20070401
  2. CASCARA BUCKTHORN (RHAMNUS PURSHIANA) [Concomitant]

REACTIONS (3)
  - ECZEMA [None]
  - EYELID DISORDER [None]
  - EYELID OEDEMA [None]
